FAERS Safety Report 8911439 (Version 1)
Quarter: 2012Q4

REPORT INFORMATION
  Report Type: 
  Country: BR (occurrence: BR)
  Receive Date: 20121115
  Receipt Date: 20121115
  Transmission Date: 20130627
  Serious: Yes (Hospitalization, Other)
  Sender: FDA-Public Use
  Company Number: BR-VERTEX PHARMACEUTICAL INC.-2012-020372

PATIENT
  Age: 67 None
  Sex: Female
  Weight: 40 kg

DRUGS (4)
  1. INCIVO [Suspect]
     Indication: HEPATITIS C
     Dosage: Dosage Form: Tablet
     Route: 048
     Dates: start: 20120813
  2. RIBAVIRIN [Concomitant]
     Indication: HEPATITIS C
     Dosage: Dosage Form: Unknown, according to the package insert
     Route: 065
     Dates: start: 20120813
  3. ALL OTHER THERAPEUTICS [Concomitant]
     Indication: HEPATITIS C
     Dosage: Dosage Form: Unknown, according to the package insert
     Route: 065
     Dates: start: 20120816
  4. PEGASYS [Concomitant]
     Indication: HEPATITIS C
     Dosage: UNK
     Dates: start: 20120813

REACTIONS (11)
  - Renal failure [Not Recovered/Not Resolved]
  - Anaemia [Not Recovered/Not Resolved]
  - Malaise [Not Recovered/Not Resolved]
  - Skin irritation [Not Recovered/Not Resolved]
  - Weight decreased [Not Recovered/Not Resolved]
  - Decreased appetite [Not Recovered/Not Resolved]
  - Pyrexia [Recovered/Resolved]
  - Blood creatine decreased [Not Recovered/Not Resolved]
  - Blood urea decreased [Not Recovered/Not Resolved]
  - Renal disorder [Unknown]
  - Rash [Not Recovered/Not Resolved]
